FAERS Safety Report 25529942 (Version 1)
Quarter: 2025Q3

REPORT INFORMATION
  Report Type: Spontaneous
  Country: JP (occurrence: JP)
  Receive Date: 20250708
  Receipt Date: 20250708
  Transmission Date: 20251020
  Serious: Yes (Death, Hospitalization, Other)
  Sender: SCIEGEN PHARMACEUTICALS INC
  Company Number: JP-SCIEGENP-2025SCLIT00167

PATIENT
  Age: 48 Year
  Sex: Female

DRUGS (1)
  1. QUETIAPINE [Suspect]
     Active Substance: QUETIAPINE
     Indication: Product used for unknown indication
     Route: 048

REACTIONS (3)
  - Electrocardiogram QRS complex prolonged [Fatal]
  - Seizure [Fatal]
  - Overdose [Fatal]
